FAERS Safety Report 22147155 (Version 1)
Quarter: 2023Q1

REPORT INFORMATION
  Report Type: Report from Study
  Country: CA (occurrence: CA)
  Receive Date: 20230328
  Receipt Date: 20230328
  Transmission Date: 20230417
  Serious: Yes (Other)
  Sender: FDA-Public Use
  Company Number: CA-BAYER-2023A037349

PATIENT
  Sex: Male

DRUGS (1)
  1. EYLEA [Suspect]
     Active Substance: AFLIBERCEPT
     Indication: Diabetic retinopathy
     Dosage: SOLUTION FOR INJECTION, 40MG/ML

REACTIONS (3)
  - Eye haemorrhage [Recovering/Resolving]
  - Vitreous haemorrhage [Unknown]
  - Tractional retinal detachment [Unknown]

NARRATIVE: CASE EVENT DATE: 20230301
